FAERS Safety Report 7583819-8 (Version None)
Quarter: 2011Q2

REPORT INFORMATION
  Report Type: 
  Country: None (occurrence: None)
  Receive Date: 20110630
  Receipt Date: 20110622
  Transmission Date: 20111010
  Serious: Yes (Hospitalization)
  Sender: FDA-Public Use
  Company Number: IL-ROCHE-785209

PATIENT
  Sex: Male
  Weight: 87 kg

DRUGS (13)
  1. METHOXY POLYETHYLENE GLYCOL-EPOETIN BETA [Suspect]
     Route: 042
     Dates: start: 20090201
  2. PLAVIX [Concomitant]
     Dosage: DOSE 75
     Route: 048
  3. AMLODIPINE [Concomitant]
     Indication: HYPERTENSION
     Dosage: DOSE 5
     Route: 048
  4. INSULIN [Concomitant]
     Indication: DIABETES MELLITUS
     Dosage: DOSE 8 UNITS
     Route: 058
  5. SIMVASTATIN [Concomitant]
     Dosage: 40
     Route: 048
  6. FUSID [Concomitant]
     Dosage: DOSE 40
     Route: 048
  7. LANTUS [Concomitant]
     Dosage: 80 UNITS A DAY
  8. AEROVENT [Concomitant]
     Route: 055
  9. CEFUROXIME [Concomitant]
     Indication: BRONCHITIS
  10. PREDNISONE [Concomitant]
  11. DOXAZOSIN MESYLATE [Concomitant]
     Indication: HYPERTENSION
  12. ASPIRIN [Concomitant]
     Dosage: DOSE 100, HEART
     Route: 048
  13. VENTOLIN HFA [Concomitant]
     Route: 055

REACTIONS (1)
  - BRONCHITIS [None]
